FAERS Safety Report 5048017-0 (Version None)
Quarter: 2006Q3

REPORT INFORMATION
  Report Type: 
  Country: None (occurrence: None)
  Receive Date: 20060710
  Receipt Date: 20060710
  Transmission Date: 20061208
  Serious: Yes (Other)
  Sender: FDA-Public Use
  Company Number: None

PATIENT
  Age: 28 Year
  Sex: Female

DRUGS (1)
  1. MARCAINE [Suspect]
     Indication: CAESAREAN SECTION
     Dosage: 2 ML  ONE TIME     OTHER
     Route: 050
     Dates: start: 20060706, end: 20060706

REACTIONS (2)
  - ANAESTHETIC COMPLICATION [None]
  - DRUG INEFFECTIVE [None]
